FAERS Safety Report 4608782-0 (Version None)
Quarter: 2005Q1

REPORT INFORMATION
  Report Type: 
  Country: None (occurrence: None)
  Receive Date: 20050309
  Receipt Date: 20050223
  Transmission Date: 20050727
  Serious: Yes (Life-Threatening)
  Sender: FDA-Public Use
  Company Number: A01200500241

PATIENT
  Age: 90 Year
  Sex: Female

DRUGS (10)
  1. PLAVIX [Suspect]
     Indication: CEREBROVASCULAR ACCIDENT
     Dosage: 75 MG QD
     Route: 048
     Dates: start: 19991201
  2. LASILIX (FUROSEMIDE) [Concomitant]
  3. ATORVASTATIN CALCIUM [Concomitant]
  4. LANSOPRAZOLE [Concomitant]
  5. EUPRESSYL (URAPIDIL) [Concomitant]
  6. NOOTROPYL (PIRACETAM) [Concomitant]
  7. POTASSIUM CHLORIDE [Concomitant]
  8. FONZYLANE (BUFLOMEDIAL HYDROCHLORIDE) [Concomitant]
  9. ALLOPURINOL [Concomitant]
  10. LANSOPRAZOLE [Concomitant]

REACTIONS (4)
  - ANAEMIA [None]
  - CONDITION AGGRAVATED [None]
  - HYPERGLYCAEMIA [None]
  - RENAL FAILURE CHRONIC [None]
